FAERS Safety Report 15297449 (Version 4)
Quarter: 2018Q4

REPORT INFORMATION
  Report Type: Spontaneous
  Country: JP (occurrence: JP)
  Receive Date: 20180820
  Receipt Date: 20181121
  Transmission Date: 20190204
  Serious: Yes (Death, Hospitalization, Other)
  Sender: FDA-Public Use
  Company Number: JP-BAYER-2018-135390

PATIENT
  Sex: Male

DRUGS (1)
  1. STIVARGA [Suspect]
     Active Substance: REGORAFENIB
     Indication: HEPATOCELLULAR CARCINOMA
     Dosage: 80 MG, QD
     Route: 048
     Dates: start: 20170824, end: 20180703

REACTIONS (5)
  - Metastases to lung [Fatal]
  - Metastases to central nervous system [Not Recovered/Not Resolved]
  - Hepatocellular carcinoma [Fatal]
  - Cerebral haemorrhage [Recovered/Resolved]
  - Seizure [Recovered/Resolved]

NARRATIVE: CASE EVENT DATE: 20180703
